FAERS Safety Report 17277968 (Version 3)
Quarter: 2020Q1

REPORT INFORMATION
  Report Type: Spontaneous
  Country: US (occurrence: US)
  Receive Date: 20200116
  Receipt Date: 20200330
  Transmission Date: 20200409
  Serious: Yes (Disabling, Other)
  Sender: FDA-Public Use
  Company Number: US-PFIZER INC-2020019701

PATIENT
  Age: 78 Year
  Sex: Female

DRUGS (1)
  1. PREMARIN [Suspect]
     Active Substance: ESTROGENS, CONJUGATED
     Dosage: (THE FIRST MARK, HALF AN INCH ON SUNDAY AND WEDNESDAY)

REACTIONS (4)
  - Arthritis [Unknown]
  - Cardiac disorder [Unknown]
  - Memory impairment [Unknown]
  - Hypoacusis [Unknown]
